FAERS Safety Report 14273586 (Version 3)
Quarter: 2022Q4

REPORT INFORMATION
  Report Type: Spontaneous
  Country: FR (occurrence: FR)
  Receive Date: 20171211
  Receipt Date: 20221104
  Transmission Date: 20230113
  Serious: Yes (Other)
  Sender: FDA-Public Use
  Company Number: FR-BRISTOL-MYERS SQUIBB COMPANY-BMS-2017-011548

PATIENT
  Age: 48 Year
  Sex: Female

DRUGS (6)
  1. ABILIFY [Suspect]
     Active Substance: ARIPIPRAZOLE
     Indication: Tourette^s disorder
     Dosage: 10 MG, QD
     Route: 048
     Dates: start: 2014
  2. ABILIFY [Suspect]
     Active Substance: ARIPIPRAZOLE
     Indication: Bipolar disorder
     Dosage: UNK
     Route: 065
  3. ABILIFY [Suspect]
     Active Substance: ARIPIPRAZOLE
     Dosage: 5 MG, QD
     Route: 048
     Dates: start: 2014
  4. BRINTELLIX [Suspect]
     Active Substance: VORTIOXETINE HYDROBROMIDE
     Indication: Depression
     Dosage: 10 MG, QD
     Route: 065
     Dates: start: 20170106
  5. BRINTELLIX [Suspect]
     Active Substance: VORTIOXETINE HYDROBROMIDE
     Indication: Bipolar disorder
     Dosage: 5 MG, UNK
     Route: 065
  6. VALIUM [Concomitant]
     Active Substance: DIAZEPAM
     Indication: Insomnia
     Dosage: 10 MG, PRN
     Route: 065

REACTIONS (2)
  - Mania [Recovered/Resolved]
  - Product use in unapproved indication [Unknown]
